FAERS Safety Report 8107758-9 (Version None)
Quarter: 2012Q1

REPORT INFORMATION
  Report Type: 
  Country: None (occurrence: None)
  Receive Date: 20120202
  Receipt Date: 20120127
  Transmission Date: 20120608
  Serious: Yes (Other)
  Sender: FDA-Public Use
  Company Number: BR-JNJFOC-20120113458

PATIENT
  Age: 14 Year
  Sex: Male

DRUGS (4)
  1. TENOFOVIR DISOPROSIL FUMARATE (VIREAD) [Concomitant]
     Indication: HIV INFECTION
     Route: 065
  2. PREZISTA [Suspect]
     Indication: HIV INFECTION
     Route: 048
     Dates: start: 20111201
  3. UNKNOWN MEDICATION [Concomitant]
     Indication: HIV INFECTION
     Route: 065
  4. RITONAVIR [Concomitant]
     Indication: HIV INFECTION
     Route: 065

REACTIONS (1)
  - THROMBOCYTOPENIA [None]
